FAERS Safety Report 7534157-0 (Version None)
Quarter: 2011Q2

REPORT INFORMATION
  Report Type: 
  Country: None (occurrence: None)
  Receive Date: 20110608
  Receipt Date: 20061024
  Transmission Date: 20111010
  Serious: Yes (Other)
  Sender: FDA-Public Use
  Company Number: PHHO2006DK17926

PATIENT

DRUGS (3)
  1. ATACAND [Concomitant]
     Dosage: UNKNOWN
  2. VALSARTAN  AND HYDROCHLOROTHIAZIDE [Suspect]
     Indication: HYPERTENSION
     Dosage: 160MG/25MG
     Route: 048
     Dates: start: 20060524
  3. CALCIUM CHANNEL BLOCKERS [Concomitant]
     Dosage: UNKNOWN

REACTIONS (1)
  - BLOOD PRESSURE DIASTOLIC INCREASED [None]
